FAERS Safety Report 25941408 (Version 2)
Quarter: 2025Q4

REPORT INFORMATION
  Report Type: Spontaneous
  Country: CA (occurrence: CA)
  Receive Date: 20251020
  Receipt Date: 20251209
  Transmission Date: 20260117
  Serious: Yes (Other)
  Sender: PFIZER
  Company Number: CA-PFIZER INC-202500204829

PATIENT
  Age: 36 Year
  Sex: Male

DRUGS (3)
  1. IXIFI [Suspect]
     Active Substance: INFLIXIMAB-QBTX
     Indication: Crohn^s disease
     Dosage: 10 MG/KG,EVERY 4 WEEK
     Route: 042
     Dates: start: 20250819
  2. IXIFI [Suspect]
     Active Substance: INFLIXIMAB-QBTX
     Dosage: 10 MG/KG,EVERY 4 WEEK
     Route: 042
     Dates: start: 20250917
  3. ENTOCORT [Concomitant]
     Active Substance: BUDESONIDE
     Dosage: 1 DF

REACTIONS (4)
  - Ileal stenosis [Not Recovered/Not Resolved]
  - Sacroiliitis [Not Recovered/Not Resolved]
  - Fistula [Not Recovered/Not Resolved]
  - Enteritis [Not Recovered/Not Resolved]

NARRATIVE: CASE EVENT DATE: 20250922
